FAERS Safety Report 23268357 (Version 1)
Quarter: 2023Q4

REPORT INFORMATION
  Report Type: Spontaneous
  Country: US (occurrence: None)
  Receive Date: 20231206
  Receipt Date: 20231206
  Transmission Date: 20240110
  Serious: Yes (Death, Hospitalization)
  Sender: FDA-Public Use
  Company Number: None

PATIENT
  Sex: Female
  Weight: 55 kg

DRUGS (2)
  1. GEMCITABINE HYDROCHLORIDE [Suspect]
     Active Substance: GEMCITABINE HYDROCHLORIDE
  2. PACLITAXEL PROTEIN-BOUND PARTICLES (ALBUMIN-BOUND) [Concomitant]

REACTIONS (4)
  - Unresponsive to stimuli [None]
  - Hemiparesis [None]
  - Cerebrovascular accident [None]
  - Hospice care [None]

NARRATIVE: CASE EVENT DATE: 20231108
